FAERS Safety Report 7227936-0 (Version None)
Quarter: 2011Q1

REPORT INFORMATION
  Report Type: 
  Country: None (occurrence: None)
  Receive Date: 20110114
  Receipt Date: 20110113
  Transmission Date: 20110831
  Serious: Yes (Death, Other)
  Sender: FDA-Public Use
  Company Number: US-B.I. PHARMACEUTICALS,INC./RIDGEFIELD-2011-BP-00883BP

PATIENT
  Sex: Male

DRUGS (5)
  1. MORPHINE SULFATE [Concomitant]
     Indication: PAIN
     Dates: end: 20101229
  2. LIPITOR [Concomitant]
     Indication: BLOOD CHOLESTEROL INCREASED
     Dates: end: 20101229
  3. BENECAR [Concomitant]
     Indication: HYPERTENSION
     Dates: end: 20101229
  4. FLOMAX [Suspect]
     Indication: PROSTATE CANCER
     Dosage: 0.4 MG
     Route: 048
     Dates: start: 20040101
  5. OXYCODONE [Concomitant]
     Indication: PAIN
     Dates: end: 20101229

REACTIONS (1)
  - PROSTATE CANCER [None]
